FAERS Safety Report 7988006-7 (Version None)
Quarter: 2011Q4

REPORT INFORMATION
  Report Type: 
  Country: None (occurrence: None)
  Receive Date: 20111216
  Receipt Date: 20101123
  Transmission Date: 20120403
  Serious: No
  Sender: FDA-Public Use
  Company Number: US-BRISTOL-MYERS SQUIBB COMPANY-15404866

PATIENT
  Age: 45 Year
  Sex: Female

DRUGS (3)
  1. CYMBALTA [Suspect]
  2. ABILIFY [Suspect]
     Indication: PSYCHOTIC DISORDER
     Dosage: UNK STRENTH DECREASED TO 5 MG AND AGAIN INCREASED TO 20MG  CURRENTLY IN 25MG
     Dates: start: 20070101
  3. VICODIN [Suspect]

REACTIONS (1)
  - TARDIVE DYSKINESIA [None]
